FAERS Safety Report 8345945-5 (Version None)
Quarter: 2012Q2

REPORT INFORMATION
  Report Type: 
  Country: None (occurrence: None)
  Receive Date: 20120507
  Receipt Date: 20120425
  Transmission Date: 20120825
  Serious: Yes (Hospitalization)
  Sender: FDA-Public Use
  Company Number: DKLU1078001

PATIENT
  Age: 4 Year
  Sex: Male

DRUGS (7)
  1. TRILEPTAL [Concomitant]
  2. ONFI [Concomitant]
  3. SABRIL [Suspect]
     Indication: EPILEPSY
     Dosage: 1000 MG MILLIGRAM(S), 2 IN 1 D, ORAL
     Route: 048
     Dates: start: 20111116
  4. SABRIL [Suspect]
     Indication: INFANTILE SPASMS
     Dosage: 1000 MG MILLIGRAM(S), 2 IN 1 D, ORAL
     Route: 048
     Dates: start: 20111116
  5. ATIVAN [Concomitant]
  6. FELBAMATE [Concomitant]
  7. FELBATOL [Concomitant]

REACTIONS (1)
  - RESPIRATORY TRACT INFECTION VIRAL [None]
